FAERS Safety Report 4527067-4 (Version None)
Quarter: 2004Q4

REPORT INFORMATION
  Report Type: 
  Country: None (occurrence: None)
  Receive Date: 20041213
  Receipt Date: 20041201
  Transmission Date: 20050328
  Serious: Yes (Death, Hospitalization)
  Sender: FDA-Public Use
  Company Number: 2004087618

PATIENT
  Age: 69 Year
  Sex: Male

DRUGS (1)
  1. VORICONAZOLE (VORICONAZOLE) [Suspect]
     Indication: LUNG ABSCESS

REACTIONS (3)
  - ATRIAL FIBRILLATION [None]
  - LYMPHADENOPATHY [None]
  - RESPIRATORY DISORDER [None]
